FAERS Safety Report 17055780 (Version 2)
Quarter: 2019Q4

REPORT INFORMATION
  Report Type: Spontaneous
  Country: FI (occurrence: FI)
  Receive Date: 20191120
  Receipt Date: 20191127
  Transmission Date: 20200122
  Serious: Yes (Other)
  Sender: FDA-Public Use
  Company Number: FI-009507513-1911FIN006625

PATIENT
  Age: 41 Year
  Sex: Female

DRUGS (10)
  1. SIMVASTATIN. [Suspect]
     Active Substance: SIMVASTATIN
     Indication: HYPERCHOLESTEROLAEMIA
     Dosage: UNK
  2. ROSUVASTATIN. [Suspect]
     Active Substance: ROSUVASTATIN
     Indication: HYPERCHOLESTEROLAEMIA
     Dosage: UNK
  3. FLUVASTATIN SODIUM. [Suspect]
     Active Substance: FLUVASTATIN SODIUM
     Indication: HYPERCHOLESTEROLAEMIA
     Dosage: UNK
  4. ATORVASTATIN [Suspect]
     Active Substance: ATORVASTATIN
     Indication: HYPERCHOLESTEROLAEMIA
     Dosage: UNK
  5. ASTAXANTHIN (+) BERBERINE CHLORIDE (+) FOLIC ACID (+) POLICOSANOL (+) (ARMOLIPID PLUS) [Suspect]
     Active Substance: DIETARY SUPPLEMENT
     Indication: HYPERCHOLESTEROLAEMIA
     Dosage: UNK
  6. PANADOL FORTE [Concomitant]
     Dosage: IF NEEDED
  7. KALCIPOS D [Concomitant]
     Active Substance: CALCIUM CARBONATE\CHOLECALCIFEROL
     Dosage: 1X1
  8. LANTUS [Concomitant]
     Active Substance: INSULIN GLARGINE
     Dosage: 60 UNITS A DAY
  9. JANUVIA [Suspect]
     Active Substance: SITAGLIPTIN PHOSPHATE
     Indication: TYPE 2 DIABETES MELLITUS
     Dosage: 1X1/ 100MG ONCE A DAY
     Route: 048
     Dates: end: 20181008
  10. EZETIMIBE. [Suspect]
     Active Substance: EZETIMIBE
     Indication: HYPERCHOLESTEROLAEMIA
     Dosage: UNK

REACTIONS (16)
  - Hypothyroidism [Unknown]
  - Basedow^s disease [Unknown]
  - Myocardial infarction [Recovered/Resolved with Sequelae]
  - Cardiac failure chronic [Not Recovered/Not Resolved]
  - Diabetic retinopathy [Unknown]
  - Atrial fibrillation [Unknown]
  - Adverse drug reaction [Recovered/Resolved]
  - Hypertension [Recovering/Resolving]
  - Dyslipidaemia [Unknown]
  - Cerebral infarction [Recovered/Resolved]
  - Left ventricular dysfunction [Recovering/Resolving]
  - Central obesity [Recovered/Resolved]
  - Arcus lipoides [Unknown]
  - Diabetes mellitus inadequate control [Recovered/Resolved]
  - Coronary artery disease [Recovering/Resolving]
  - Myalgia [Recovered/Resolved]

NARRATIVE: CASE EVENT DATE: 1998
